FAERS Safety Report 6145221-5 (Version None)
Quarter: 2009Q2

REPORT INFORMATION
  Report Type: 
  Country: None (occurrence: None)
  Receive Date: 20090401
  Receipt Date: 20090324
  Transmission Date: 20091009
  Serious: Yes (Death)
  Sender: FDA-Public Use
  Company Number: GXKR2009GB00840

PATIENT
  Age: 49 Year
  Sex: Female

DRUGS (2)
  1. METFORMIN (NGX) (METFORMIN) UNKNOWN [Suspect]
     Indication: DIABETES MELLITUS
     Dosage: 2 G, ORAL
     Route: 048
  2. SOLIAN (AMISULPRIDE) [Suspect]
     Dosage: 500 MG, BID, ORAL
     Route: 048

REACTIONS (3)
  - DRUG TOXICITY [None]
  - OVERDOSE [None]
  - RENAL IMPAIRMENT [None]
